FAERS Safety Report 5188197-X (Version None)
Quarter: 2006Q4

REPORT INFORMATION
  Report Type: 
  Country: None (occurrence: None)
  Receive Date: 20061221
  Receipt Date: 20061218
  Transmission Date: 20070319
  Serious: Yes (Death)
  Sender: FDA-Public Use
  Company Number: CH-NOVOPROD-259391

PATIENT

DRUGS (1)
  1. MIXTARD 30 HM [Suspect]
     Indication: DIABETES MELLITUS INSULIN-DEPENDENT
     Dosage: UNK, BID

REACTIONS (1)
  - ACCIDENTAL OVERDOSE [None]
